APPROVED DRUG PRODUCT: CARMUSTINE
Active Ingredient: CARMUSTINE
Strength: 100MG/VIAL
Dosage Form/Route: INJECTABLE;INJECTION
Application: A211202 | Product #001
Applicant: JIANGSU HENGRUI PHARMACEUTICALS CO LTD
Approved: Mar 12, 2021 | RLD: No | RS: No | Type: DISCN